FAERS Safety Report 7739315-8 (Version None)
Quarter: 2011Q3

REPORT INFORMATION
  Report Type: 
  Country: None (occurrence: None)
  Receive Date: 20110909
  Receipt Date: 20110830
  Transmission Date: 20111222
  Serious: Yes (Death, Other)
  Sender: FDA-Public Use
  Company Number: NO-NAPPMUNDI-GBR-2011-0008734

PATIENT
  Sex: Female

DRUGS (7)
  1. TRAMADOL HCL [Suspect]
     Dosage: UNK
     Dates: start: 20110324, end: 20110724
  2. TRAMADOL HCL [Suspect]
     Dosage: UNK
     Dates: start: 20110213, end: 20110301
  3. PANTOPRAZOLE [Concomitant]
  4. BUPRENORPHINE [Suspect]
     Indication: DECUBITUS ULCER
     Dosage: 0.143 DF, UNK
     Route: 062
     Dates: start: 20110324, end: 20110514
  5. MORPHINE SULFATE [Suspect]
     Indication: DECUBITUS ULCER
     Route: 051
  6. FENTANYL-100 [Suspect]
     Indication: DECUBITUS ULCER
     Dosage: 1 DF, WEEKLY
     Route: 062
     Dates: start: 20110514, end: 20110630
  7. FENTANYL-100 [Suspect]
     Dosage: 1 DF, 2/WEEK
     Route: 062
     Dates: start: 20110703

REACTIONS (7)
  - SPEECH DISORDER [None]
  - MUSCULAR WEAKNESS [None]
  - MUSCLE RIGIDITY [None]
  - DYSPHAGIA [None]
  - RESPIRATORY ARREST [None]
  - TRISMUS [None]
  - SEDATION [None]
